FAERS Safety Report 10451318 (Version 2)
Quarter: 2014Q4

REPORT INFORMATION
  Report Type: Spontaneous
  Country: CN (occurrence: CN)
  Receive Date: 20140912
  Receipt Date: 20141029
  Transmission Date: 20150528
  Serious: Yes (Other)
  Sender: FDA-Public Use
  Company Number: CN-GLAXOSMITHKLINE-B1032571A

PATIENT
  Age: 40 Year
  Sex: Male

DRUGS (1)
  1. SERETIDE [Suspect]
     Active Substance: FLUTICASONE FUROATE\SALMETEROL XINAFOATE
     Indication: ASTHMA
     Route: 055

REACTIONS (5)
  - Product quality issue [Unknown]
  - Cough [Recovering/Resolving]
  - Throat irritation [Recovering/Resolving]
  - Choking [Recovering/Resolving]
  - Oropharyngeal discomfort [Recovering/Resolving]
